FAERS Safety Report 13180659 (Version 2)
Quarter: 2017Q1

REPORT INFORMATION
  Report Type: Spontaneous
  Country: CA (occurrence: CA)
  Receive Date: 20170202
  Receipt Date: 20170210
  Transmission Date: 20170428
  Serious: Yes (Death, Hospitalization, Other)
  Sender: FDA-Public Use
  Company Number: CA-PFIZER INC-2017040756

PATIENT
  Sex: Male

DRUGS (2)
  1. METHOTREXATE SODIUM. [Suspect]
     Active Substance: METHOTREXATE SODIUM
     Dosage: UNK, WEEKLY
  2. METHOTREXATE SODIUM. [Suspect]
     Active Substance: METHOTREXATE SODIUM
     Indication: ARTHRALGIA
     Dosage: UNK, 1X/DAY

REACTIONS (5)
  - Drug dispensing error [Fatal]
  - Accidental overdose [Fatal]
  - Pain [Unknown]
  - Rash [Unknown]
  - Chemical burn of skin [Unknown]

NARRATIVE: CASE EVENT DATE: 20140731
